FAERS Safety Report 14677678 (Version 1)
Quarter: 2018Q1

REPORT INFORMATION
  Report Type: Report from Study
  Country: FR (occurrence: FR)
  Receive Date: 20180325
  Receipt Date: 20180325
  Transmission Date: 20180509
  Serious: Yes (Hospitalization, Other)
  Sender: FDA-Public Use
  Company Number: FR-SHIRE-FR201730492

PATIENT

DRUGS (21)
  1. DOXORUBICIN [Suspect]
     Active Substance: DOXORUBICIN
     Indication: ACUTE LYMPHOCYTIC LEUKAEMIA
     Dosage: 12.4 MG, UNK
     Route: 042
     Dates: start: 20170915, end: 20170915
  2. DOXORUBICIN [Suspect]
     Active Substance: DOXORUBICIN
     Dosage: UNK
     Route: 042
     Dates: start: 20170831, end: 20170831
  3. CYCLOPHOSPHAMIDE. [Suspect]
     Active Substance: CYCLOPHOSPHAMIDE
     Indication: ACUTE LYMPHOCYTIC LEUKAEMIA
     Dosage: UNK
     Route: 065
     Dates: start: 20171003, end: 20171003
  4. CYTARABINE. [Suspect]
     Active Substance: CYTARABINE
     Dosage: 140 MG, TOTAL DOSE
     Route: 065
     Dates: start: 20171005, end: 20171008
  5. ARA-C [Suspect]
     Active Substance: CYTARABINE
     Indication: ACUTE LYMPHOCYTIC LEUKAEMIA
     Dosage: 25 MG, UNK
     Route: 037
     Dates: start: 20171005, end: 20171005
  6. VINCRISTINE [Suspect]
     Active Substance: VINCRISTINE
     Dosage: UNK
     Route: 042
     Dates: start: 20170831, end: 20170831
  7. DOXORUBICIN [Suspect]
     Active Substance: DOXORUBICIN
     Dosage: 12.4 MG, UNK
     Route: 042
     Dates: start: 20170908, end: 20170908
  8. CYTARABINE. [Suspect]
     Active Substance: CYTARABINE
     Dosage: 25 MG, UNK
     Route: 037
     Dates: start: 20170904, end: 20171006
  9. PEGASPARGASE [Suspect]
     Active Substance: PEGASPARGASE
     Indication: ACUTE LYMPHOCYTIC LEUKAEMIA
     Dosage: 1275 IU, UNK
     Route: 065
     Dates: start: 20171017, end: 20171017
  10. PEGASPARGASE [Suspect]
     Active Substance: PEGASPARGASE
     Dosage: 1275 IU, UNK
     Route: 065
     Dates: start: 20170904, end: 20170904
  11. CORTIC                             /00028604/ [Suspect]
     Active Substance: HYDROCORTISONE ACETATE
     Dosage: 12.6 MG, UNK
     Route: 037
     Dates: start: 20170904, end: 20170904
  12. METHOTREXATE (METHOTREXATE SODIUM) [Suspect]
     Active Substance: METHOTREXATE SODIUM
     Indication: ACUTE LYMPHOCYTIC LEUKAEMIA
     Dosage: 10 MG, UNK
     Route: 037
     Dates: start: 20171005, end: 20171005
  13. ARA-C [Suspect]
     Active Substance: CYTARABINE
     Dosage: 25 MG, UNK
     Route: 037
     Dates: start: 20170904, end: 20170904
  14. VINCRISTINE [Suspect]
     Active Substance: VINCRISTINE
     Dosage: 0.75 MG, UNK
     Route: 042
     Dates: start: 20170908, end: 20170908
  15. METHOTREXATE (METHOTREXATE SODIUM) [Suspect]
     Active Substance: METHOTREXATE SODIUM
     Dosage: 10 MG, UNK
     Route: 037
     Dates: start: 20170904, end: 20170904
  16. CYTARABINE. [Suspect]
     Active Substance: CYTARABINE
     Indication: ACUTE LYMPHOCYTIC LEUKAEMIA
     Dosage: 140 MG, TOTAL DOSE
     Route: 065
     Dates: start: 20171012, end: 20171015
  17. VINCRISTINE [Suspect]
     Active Substance: VINCRISTINE
     Indication: ACUTE LYMPHOCYTIC LEUKAEMIA
     Dosage: 0.75 MG, UNK
     Route: 042
     Dates: start: 20171017, end: 20171017
  18. 6-MP [Suspect]
     Active Substance: MERCAPTOPURINE
     Indication: ACUTE LYMPHOCYTIC LEUKAEMIA
     Dosage: 420 MG, UNK
     Route: 048
     Dates: start: 20171003, end: 20171016
  19. VINCRISTINE [Suspect]
     Active Substance: VINCRISTINE
     Dosage: 0.75 MG, UNK
     Route: 042
     Dates: start: 20170915, end: 20170915
  20. DEXAMETHASONE. [Suspect]
     Active Substance: DEXAMETHASONE
     Indication: ACUTE LYMPHOCYTIC LEUKAEMIA
     Dosage: 31.5 MG TOTAL DOSE FRO DAY 15-21
     Route: 048
     Dates: start: 20170915, end: 20170921
  21. CORTIC /00028604/ [Suspect]
     Active Substance: HYDROCORTISONE ACETATE
     Indication: ACUTE LYMPHOCYTIC LEUKAEMIA
     Dosage: 12.5 UNK, UNK
     Route: 037
     Dates: start: 20171005, end: 20171005

REACTIONS (1)
  - Febrile neutropenia [Recovered/Resolved]

NARRATIVE: CASE EVENT DATE: 20171022
